FAERS Safety Report 7557815-0 (Version None)
Quarter: 2011Q2

REPORT INFORMATION
  Report Type: 
  Country: None (occurrence: None)
  Receive Date: 20110620
  Receipt Date: 20110609
  Transmission Date: 20111010
  Serious: Yes (Hospitalization)
  Sender: FDA-Public Use
  Company Number: FR-BRISTOL-MYERS SQUIBB COMPANY-15841570

PATIENT
  Age: 69 Year
  Sex: Male

DRUGS (11)
  1. LASIX [Suspect]
     Indication: ISCHAEMIC CARDIOMYOPATHY
     Dosage: 1D,FORMULATION : 40 MG TABS,FOR A LONG TIME
     Route: 048
  2. BUSPAR [Suspect]
     Indication: DEPRESSION
     Dosage: FOR A LONG TIME
  3. TENORMIN [Suspect]
     Indication: ISCHAEMIC CARDIOMYOPATHY
     Dosage: 1D,50MG TABS,FOR A LONG TIME
     Route: 048
  4. ATARAX [Suspect]
     Indication: DEPRESSION
     Dosage: FORM: 25MG TABS,FOR A LONG TIME
     Route: 048
  5. TRIMEPRAZINE TARTRATE [Concomitant]
     Indication: DEPRESSION
     Dosage: FOR A LONG TIME
  6. LYRICA [Concomitant]
     Indication: PAIN
     Dosage: FOR A LONG TIME
  7. ASPIRIN [Concomitant]
     Indication: ISCHAEMIC CARDIOMYOPATHY
     Dosage: FOR A LONG TIME
  8. MIRTAZAPINE [Concomitant]
     Indication: DEPRESSION
     Dosage: FOR A LONG TIME
     Route: 048
  9. GLUCOPHAGE [Suspect]
     Indication: TYPE 2 DIABETES MELLITUS
     Dosage: 850 MG - FOR A LONG TIME
     Route: 048
  10. RAMIPRIL [Suspect]
     Indication: ISCHAEMIC CARDIOMYOPATHY
     Dosage: 2.5MG TAB,FOR A LONG TIME
     Route: 048
  11. PRAVASTATIN [Concomitant]
     Indication: HYPERCHOLESTEROLAEMIA
     Dosage: FOR LONG TIME
     Route: 048

REACTIONS (3)
  - SUICIDE ATTEMPT [None]
  - INTENTIONAL OVERDOSE [None]
  - HYPOGLYCAEMIA [None]
